FAERS Safety Report 13416223 (Version 1)
Quarter: 2017Q2

REPORT INFORMATION
  Report Type: Spontaneous
  Country: IT (occurrence: IT)
  Receive Date: 20170407
  Receipt Date: 20170407
  Transmission Date: 20170830
  Serious: Yes (Hospitalization)
  Sender: FDA-Public Use
  Company Number: IT-BAYER-2017-062333

PATIENT
  Age: 80 Year
  Sex: Male

DRUGS (1)
  1. ASPIRINA 500 MG [Suspect]
     Active Substance: ASPIRIN
     Dosage: UNK UNK, QD
     Route: 048

REACTIONS (2)
  - Heart rate increased [Unknown]
  - Anaemia [Unknown]

NARRATIVE: CASE EVENT DATE: 20170209
